FAERS Safety Report 19384013 (Version 2)
Quarter: 2021Q2

REPORT INFORMATION
  Report Type: Spontaneous
  Country: US (occurrence: US)
  Receive Date: 20210608
  Receipt Date: 20210610
  Transmission Date: 20210717
  Serious: Yes (Hospitalization, Other)
  Sender: FDA-Public Use
  Company Number: US-AUROBINDO-AUR-APL-2021-023389

PATIENT
  Age: 66 Year
  Sex: Female

DRUGS (3)
  1. PARICALCITOL. [Suspect]
     Active Substance: PARICALCITOL
     Indication: PRODUCT USED FOR UNKNOWN INDICATION
     Route: 042
  2. CALCIUM ACETATE. [Suspect]
     Active Substance: CALCIUM ACETATE
     Indication: PRODUCT USED FOR UNKNOWN INDICATION
     Dosage: UNK
     Route: 065
  3. WARFARIN [Suspect]
     Active Substance: WARFARIN
     Indication: ATRIAL FIBRILLATION
     Dosage: UNK
     Route: 065

REACTIONS (8)
  - Arteriosclerosis coronary artery [Not Recovered/Not Resolved]
  - Mitral valve calcification [Not Recovered/Not Resolved]
  - Calciphylaxis [Not Recovered/Not Resolved]
  - Pulmonary calcification [Not Recovered/Not Resolved]
  - Arteriosclerosis [Not Recovered/Not Resolved]
  - Arteriosclerosis coronary artery [Recovering/Resolving]
  - Aortic arteriosclerosis [Not Recovered/Not Resolved]
  - Aortic valve sclerosis [Not Recovered/Not Resolved]
